FAERS Safety Report 6437108-5 (Version None)
Quarter: 2009Q4

REPORT INFORMATION
  Report Type: 
  Country: None (occurrence: None)
  Receive Date: 20091112
  Receipt Date: 20091102
  Transmission Date: 20100525
  Serious: Yes (Hospitalization)
  Sender: FDA-Public Use
  Company Number: SE-JNJFOC-20091100877

PATIENT
  Age: 44 Year
  Sex: Female

DRUGS (5)
  1. REMICADE [Suspect]
     Indication: RHEUMATOID ARTHRITIS
     Route: 042
     Dates: start: 20000201, end: 20090901
  2. METHOTREXATE [Suspect]
     Indication: RHEUMATOID ARTHRITIS
  3. FOLACIN [Concomitant]
  4. KETOPROFEN [Concomitant]
  5. OMEPRAZOLE [Concomitant]

REACTIONS (1)
  - HERPES ZOSTER [None]
